FAERS Safety Report 5620460-8 (Version None)
Quarter: 2008Q1

REPORT INFORMATION
  Report Type: 
  Country: None (occurrence: None)
  Receive Date: 20080208
  Receipt Date: 20080131
  Transmission Date: 20080703
  Serious: Yes (Other)
  Sender: FDA-Public Use
  Company Number: US-BOEHRINGER INGELHEIM GMBH, GERMANY-2008-BP-00564BP

PATIENT
  Sex: Male

DRUGS (4)
  1. FLOMAX [Suspect]
     Indication: BENIGN PROSTATIC HYPERPLASIA
     Route: 048
  2. FLOVENT [Concomitant]
  3. AVODART [Concomitant]
     Indication: BENIGN PROSTATIC HYPERPLASIA
  4. BECONASE [Concomitant]

REACTIONS (13)
  - BACK PAIN [None]
  - BLINDNESS UNILATERAL [None]
  - CATARACT [None]
  - EYE DISORDER [None]
  - EYE PAIN [None]
  - GLARE [None]
  - INTRAOCULAR PRESSURE INCREASED [None]
  - IRIS DISORDER [None]
  - MUSCULOSKELETAL STIFFNESS [None]
  - PUPILLARY DISORDER [None]
  - RASH [None]
  - VESSEL PUNCTURE SITE HAEMATOMA [None]
  - VISION BLURRED [None]
